FAERS Safety Report 17566212 (Version 2)
Quarter: 2020Q2

REPORT INFORMATION
  Report Type: Spontaneous
  Country: AR (occurrence: AR)
  Receive Date: 20200320
  Receipt Date: 20200625
  Transmission Date: 20200713
  Serious: Yes (Life-Threatening, Other)
  Sender: FDA-Public Use
  Company Number: AR-PFIZER INC-2020105777

PATIENT
  Age: 62 Year
  Sex: Male

DRUGS (3)
  1. SUTENT [Suspect]
     Active Substance: SUNITINIB MALATE
     Indication: METASTATIC RENAL CELL CARCINOMA
     Dosage: 50 MG, DAILY
     Dates: start: 20180323
  2. SUTENT [Suspect]
     Active Substance: SUNITINIB MALATE
     Dosage: 50 MG, CYCLIC (DAILY, SCHEME 4/2)
     Dates: start: 20180323
  3. SUTENT [Suspect]
     Active Substance: SUNITINIB MALATE
     Dosage: 50 MG, DAILY (2X1 SCHEME)

REACTIONS (9)
  - Skin irritation [Unknown]
  - Rash pruritic [Recovering/Resolving]
  - Dysgraphia [Unknown]
  - Aphasia [Unknown]
  - Paralysis [Unknown]
  - Cerebrovascular accident [Unknown]
  - Rash [Recovering/Resolving]
  - Thyroxine increased [Unknown]
  - Seizure [Unknown]

NARRATIVE: CASE EVENT DATE: 2019
